FAERS Safety Report 5889034-8 (Version None)
Quarter: 2008Q3

REPORT INFORMATION
  Report Type: 
  Country: None (occurrence: None)
  Receive Date: 20080919
  Receipt Date: 20071102
  Transmission Date: 20090109
  Serious: No
  Sender: FDA-Public Use
  Company Number: US-KINGPHARMUSA00001-K200701425

PATIENT

DRUGS (6)
  1. SONATA [Suspect]
     Indication: SLEEP DISORDER
     Dosage: 10 MG,  QD PRN
     Route: 048
  2. SONATA [Suspect]
     Dosage: 20 MG, QD PRN
     Route: 048
  3. ADDERALL XR 30 [Concomitant]
     Indication: DISTURBANCE IN ATTENTION
     Dosage: UNK, QD
  4. STRATTERA [Concomitant]
     Indication: DISTURBANCE IN ATTENTION
     Dosage: 60 MG, QD
  5. NASACORT [Concomitant]
     Indication: SINUS DISORDER
  6. ALAVERT [Concomitant]
     Indication: SINUS DISORDER
     Dosage: UNK, UNK

REACTIONS (3)
  - DRUG INEFFECTIVE [None]
  - MIDDLE INSOMNIA [None]
  - POOR QUALITY SLEEP [None]
